FAERS Safety Report 8766423 (Version 1)
Quarter: 2012Q4

REPORT INFORMATION
  Report Type: 
  Country: VE (occurrence: VE)
  Receive Date: 20120904
  Receipt Date: 20120904
  Transmission Date: 20130627
  Serious: Yes (Hospitalization)
  Sender: FDA-Public Use
  Company Number: VE-ROCHE-1114317

PATIENT
  Sex: Female

DRUGS (5)
  1. XOLAIR [Suspect]
     Indication: ASTHMA
     Route: 058
     Dates: start: 20120509
  2. XOLAIR [Suspect]
     Route: 058
     Dates: start: 20120723
  3. MIFLONIDE [Suspect]
     Indication: ASTHMA
     Route: 065
  4. ONBREZ [Suspect]
     Indication: ASTHMA
     Route: 045
     Dates: start: 2010
  5. SPIRIVA [Concomitant]

REACTIONS (2)
  - Respiratory tract infection [Recovered/Resolved]
  - Dyspnoea [Not Recovered/Not Resolved]
